FAERS Safety Report 10210030 (Version 1)
Quarter: 2014Q2

REPORT INFORMATION
  Report Type: Spontaneous
  Country: GR (occurrence: GR)
  Receive Date: 20140602
  Receipt Date: 20140602
  Transmission Date: 20141212
  Serious: Yes (Death, Other)
  Sender: FDA-Public Use
  Company Number: GR-CELGENEUS-066-21660-14053825

PATIENT
  Sex: 0

DRUGS (3)
  1. ABRAXANE [Suspect]
     Indication: CERVIX CARCINOMA
     Dosage: 20-30 MG/M2
     Route: 065
  2. ABRAXANE [Suspect]
     Dosage: 7.1429 MILLIGRAM/SQ. METER
     Route: 065
  3. CISPLATIN [Concomitant]
     Indication: CERVIX CARCINOMA
     Dosage: 20-30 MG/M2/WEEK
     Route: 065

REACTIONS (8)
  - Death [Fatal]
  - Metastases to pelvis [Fatal]
  - Metastases to lymph nodes [Fatal]
  - Metastasis [Fatal]
  - Bone marrow failure [Unknown]
  - Proctitis [Unknown]
  - Enteritis [Unknown]
  - Cervix carcinoma [Unknown]
